FAERS Safety Report 23866830 (Version 1)
Quarter: 2024Q2

REPORT INFORMATION
  Report Type: Spontaneous
  Country: RU (occurrence: None)
  Receive Date: 20240517
  Receipt Date: 20240517
  Transmission Date: 20240716
  Serious: Yes (Other)
  Sender: FDA-Public Use
  Company Number: RU-ROCHE-3560010

PATIENT
  Age: 65 Year
  Sex: Female

DRUGS (4)
  1. TRASTUZUMAB [Suspect]
     Active Substance: TRASTUZUMAB
     Indication: Breast cancer
     Dosage: SIX CYCLE; 12TH CYCLE ON 05/APR/2021
     Route: 041
     Dates: start: 20201130
  2. PERTUZUMAB [Suspect]
     Active Substance: PERTUZUMAB
     Indication: Breast cancer
     Dosage: SIX CYCLE, 12TH CYCLE ON 05/APR/2021
     Route: 042
     Dates: start: 20201130
  3. PACLITAXEL [Suspect]
     Active Substance: PACLITAXEL
     Indication: Breast cancer
     Route: 042
     Dates: start: 20201130
  4. ADO-TRASTUZUMAB EMTANSINE [Suspect]
     Active Substance: ADO-TRASTUZUMAB EMTANSINE
     Indication: Breast cancer
     Dosage: 40TH CYCLE
     Route: 065
     Dates: start: 20211227, end: 20240503

REACTIONS (5)
  - Tumour haemorrhage [Unknown]
  - Epistaxis [Unknown]
  - Insomnia [Unknown]
  - Transaminases increased [Unknown]
  - Disease progression [Unknown]

NARRATIVE: CASE EVENT DATE: 20240201
